FAERS Safety Report 10075521 (Version 5)
Quarter: 2014Q3

REPORT INFORMATION
  Report Type: Spontaneous
  Country: PT (occurrence: PT)
  Receive Date: 20140414
  Receipt Date: 20140922
  Transmission Date: 20150326
  Serious: Yes (Hospitalization, Other)
  Sender: FDA-Public Use
  Company Number: PT-SA-2014SA021473

PATIENT
  Age: 29 Year
  Sex: Female
  Weight: 47 kg

DRUGS (1)
  1. MYOZYME [Suspect]
     Active Substance: ALGLUCOSIDASE ALFA
     Indication: GLYCOGEN STORAGE DISEASE TYPE II
     Route: 042
     Dates: start: 200711, end: 201310

REACTIONS (3)
  - Exposure during pregnancy [Unknown]
  - Abortion threatened [Unknown]
  - Uterine contractions abnormal [Not Recovered/Not Resolved]
